FAERS Safety Report 7647239-X (Version None)
Quarter: 2011Q3

REPORT INFORMATION
  Report Type: 
  Country: None (occurrence: None)
  Receive Date: 20110726
  Receipt Date: 20110714
  Transmission Date: 20111222
  Serious: Yes (Other)
  Sender: FDA-Public Use
  Company Number: 2011SP033172

PATIENT
  Age: 62 Year
  Sex: Male

DRUGS (6)
  1. VALPROATE SODIUM [Suspect]
     Indication: PROPHYLAXIS
     Dosage: 2300 MG ; 2000 MG
  2. SEROQUEL [Suspect]
     Indication: PROPHYLAXIS
     Dosage: 2000 MG ; 300 MG
  3. SYCREST (ASENAPINE /05706901/) [Suspect]
     Indication: MANIA
     Dosage: 10 MG;QD ; 15 MG;QD ; 20 MG;QD ; 10 MG;QAM
     Dates: start: 20110704, end: 20110707
  4. SYCREST (ASENAPINE /05706901/) [Suspect]
     Indication: MANIA
     Dosage: 10 MG;QD ; 15 MG;QD ; 20 MG;QD ; 10 MG;QAM
     Dates: start: 20110701, end: 20110703
  5. SYCREST (ASENAPINE /05706901/) [Suspect]
     Indication: MANIA
     Dosage: 10 MG;QD ; 15 MG;QD ; 20 MG;QD ; 10 MG;QAM
     Dates: start: 20110713, end: 20110713
  6. SYCREST (ASENAPINE /05706901/) [Suspect]
     Indication: MANIA
     Dosage: 10 MG;QD ; 15 MG;QD ; 20 MG;QD ; 10 MG;QAM
     Dates: start: 20110708, end: 20110712

REACTIONS (9)
  - DIZZINESS [None]
  - BLOOD LACTATE DEHYDROGENASE INCREASED [None]
  - DYSARTHRIA [None]
  - BLOOD CREATINE PHOSPHOKINASE INCREASED [None]
  - BLOOD PRESSURE INCREASED [None]
  - HEART RATE INCREASED [None]
  - BLOOD CREATININE INCREASED [None]
  - VASCULAR ENCEPHALOPATHY [None]
  - BLOOD CALCIUM INCREASED [None]
